FAERS Safety Report 5300863-1 (Version None)
Quarter: 2007Q2

REPORT INFORMATION
  Report Type: 
  Country: None (occurrence: None)
  Receive Date: 20070412
  Receipt Date: 20070330
  Transmission Date: 20071010
  Serious: Yes (Other)
  Sender: FDA-Public Use
  Company Number: 2007RL000146

PATIENT

DRUGS (2)
  1. RYTHMOL [Suspect]
     Indication: DRUG USE FOR UNKNOWN INDICATION
     Dosage: PO
     Route: 048
  2. CARDIZEM [Suspect]
     Dosage: PO
     Route: 048

REACTIONS (2)
  - HEPATITIS ACUTE [None]
  - PYREXIA [None]
